FAERS Safety Report 15526404 (Version 1)
Quarter: 2018Q4

REPORT INFORMATION
  Report Type: Spontaneous
  Country: GB (occurrence: GB)
  Receive Date: 20181018
  Receipt Date: 20181018
  Transmission Date: 20190205
  Serious: Yes (Hospitalization, Other)
  Sender: FDA-Public Use
  Company Number: GB-PFIZER INC-2018416059

PATIENT
  Age: 77 Year
  Sex: Female

DRUGS (5)
  1. PARACETAMOL [Concomitant]
     Active Substance: ACETAMINOPHEN
     Dosage: 500 MG, UNK, (EVERY 4-6 HOURS UP TO 4 TIMES A DAY)
  2. ATORVASTATIN [Concomitant]
     Active Substance: ATORVASTATIN
     Dosage: 40 MG, 1X/DAY, (AT NIGHT)
  3. GAVISCON ADVANCED [Concomitant]
     Dosage: UNK UNK, AS NEEDED
  4. DALTEPARIN SODIUM [Suspect]
     Active Substance: DALTEPARIN SODIUM
     Indication: ARTERIAL THROMBOSIS
     Dosage: 10000 IU, 1X/DAY
     Dates: start: 20180301
  5. CYCLIZINE [Concomitant]
     Active Substance: CYCLIZINE
     Dosage: 50 MG, AS NEEDED, (THREE TIMES DAILY)

REACTIONS (1)
  - Hyperkalaemia [Recovered/Resolved]
